FAERS Safety Report 4927494-7 (Version None)
Quarter: 2006Q1

REPORT INFORMATION
  Report Type: 
  Country: None (occurrence: None)
  Receive Date: 20060228
  Receipt Date: 20050829
  Transmission Date: 20060701
  Serious: Yes (Hospitalization, Disabling)
  Sender: FDA-Public Use
  Company Number: US-MERCK-0508USA04852

PATIENT
  Age: 51 Year
  Sex: Female
  Weight: 55 kg

DRUGS (6)
  1. VIOXX [Suspect]
     Indication: ARTHRITIS
     Route: 048
     Dates: start: 19991001, end: 20020201
  2. SYNTHROID [Concomitant]
     Route: 065
  3. CARDIZEM [Concomitant]
     Route: 065
  4. COUMADIN [Concomitant]
     Route: 065
  5. LIPITOR [Concomitant]
     Route: 065
  6. PRAVACHOL [Concomitant]
     Route: 065

REACTIONS (3)
  - GROIN PAIN [None]
  - LOWER RESPIRATORY TRACT INFECTION [None]
  - THROMBOSIS [None]
